FAERS Safety Report 5499823-X (Version None)
Quarter: 2007Q4

REPORT INFORMATION
  Report Type: 
  Country: None (occurrence: None)
  Receive Date: 20071026
  Receipt Date: 20071016
  Transmission Date: 20080405
  Serious: Yes (Life-Threatening, Hospitalization, Other)
  Sender: FDA-Public Use
  Company Number: CA-PFIZER INC-2007083013

PATIENT
  Age: 43 Year
  Sex: Female

DRUGS (2)
  1. CYCLOKAPRON (IV) [Suspect]
     Indication: MENORRHAGIA
     Route: 048
     Dates: start: 20070921, end: 20070923
  2. HYDROCHLOROTHIAZIDE [Concomitant]
     Dosage: DAILY DOSE:25MG-FREQ:DAILY

REACTIONS (1)
  - ACUTE MYOCARDIAL INFARCTION [None]
